FAERS Safety Report 5421213-6 (Version None)
Quarter: 2007Q3

REPORT INFORMATION
  Report Type: 
  Country: None (occurrence: None)
  Receive Date: 20070821
  Receipt Date: 20070814
  Transmission Date: 20080115
  Serious: Yes (Hospitalization)
  Sender: FDA-Public Use
  Company Number: US-ASTRAZENECA-2007UW19642

PATIENT
  Sex: Male

DRUGS (2)
  1. SEROQUEL [Suspect]
     Dosage: TITRATED TO 300MG IN THREE WEEKS
     Route: 048
  2. STRATTERA [Concomitant]

REACTIONS (5)
  - DIZZINESS [None]
  - MUSCULOSKELETAL STIFFNESS [None]
  - OVERDOSE [None]
  - SYNCOPE [None]
  - TACHYCARDIA [None]
